FAERS Safety Report 11192913 (Version 1)
Quarter: 2015Q2

REPORT INFORMATION
  Report Type: Spontaneous
  Country: US (occurrence: None)
  Receive Date: 20150615
  Receipt Date: 20150615
  Transmission Date: 20150821
  Serious: No
  Sender: FDA-Public Use
  Company Number: None

PATIENT
  Age: 41 Year
  Sex: Male

DRUGS (1)
  1. TEMOZOLOMIDE 20 MG TEVA USA [Suspect]
     Active Substance: TEMOZOLOMIDE
     Dates: start: 201408

REACTIONS (1)
  - Nausea [None]

NARRATIVE: CASE EVENT DATE: 20150101
